FAERS Safety Report 21941076 (Version 1)
Quarter: 2023Q1

REPORT INFORMATION
  Report Type: Report from Study
  Country: US (occurrence: US)
  Receive Date: 20230202
  Receipt Date: 20230202
  Transmission Date: 20230418
  Serious: No
  Sender: FDA-Public Use
  Company Number: US-EXELIXIS-CABO-22053700

PATIENT
  Sex: Female

DRUGS (1)
  1. CABOMETYX [Suspect]
     Active Substance: CABOZANTINIB S-MALATE
     Indication: Renal cancer
     Dosage: 40 MG, QD
     Route: 048
     Dates: start: 20220607

REACTIONS (7)
  - Rash pruritic [Unknown]
  - Pain [Unknown]
  - Alopecia [Unknown]
  - Dry skin [Unknown]
  - Constipation [Unknown]
  - Headache [Unknown]
  - Blood pressure increased [Unknown]
